FAERS Safety Report 5505081-X (Version None)
Quarter: 2007Q4

REPORT INFORMATION
  Report Type: 
  Country: None (occurrence: None)
  Receive Date: 20071031
  Receipt Date: 20071031
  Transmission Date: 20080405
  Serious: Yes (Life-Threatening)
  Sender: FDA-Public Use
  Company Number: None

PATIENT
  Age: 83 Year
  Sex: Male
  Weight: 68 kg

DRUGS (1)
  1. CLOPIDOGREL [Suspect]
     Indication: MYOCARDIAL INFARCTION

REACTIONS (2)
  - HAEMOPTYSIS [None]
  - THROMBOTIC THROMBOCYTOPENIC PURPURA [None]
